FAERS Safety Report 6303531-2 (Version None)
Quarter: 2009Q3

REPORT INFORMATION
  Report Type: 
  Country: None (occurrence: None)
  Receive Date: 20090807
  Receipt Date: 20090807
  Transmission Date: 20100115
  Serious: Yes (Other)
  Sender: FDA-Public Use
  Company Number: None

PATIENT
  Sex: Female
  Weight: 135.1719 kg

DRUGS (5)
  1. ALPRAZOLAM [Suspect]
     Indication: ANXIETY
     Dosage: 1 MG 4 X DAY P.O.
     Route: 048
     Dates: start: 20090619, end: 20090620
  2. BUPROPION [Concomitant]
  3. LAMOTRIGINE [Concomitant]
  4. ABILISY [Concomitant]
  5. HALOPERIDOL [Concomitant]

REACTIONS (6)
  - ANXIETY [None]
  - FEELING JITTERY [None]
  - HOSTILITY [None]
  - MUSCLE TWITCHING [None]
  - PRODUCT SUBSTITUTION ISSUE [None]
  - TREMOR [None]
